FAERS Safety Report 6594715-7 (Version None)
Quarter: 2010Q1

REPORT INFORMATION
  Report Type: 
  Country: None (occurrence: None)
  Receive Date: 20100222
  Receipt Date: 20100212
  Transmission Date: 20100710
  Serious: Yes (Hospitalization, Other)
  Sender: FDA-Public Use
  Company Number: CHPA2010JP01387

PATIENT
  Age: 65 Year
  Sex: Male

DRUGS (4)
  1. PURSENNID (NCH) [Suspect]
     Indication: CONSTIPATION
     Dosage: UNK,UNK
     Route: 048
  2. SPIRIVA [Concomitant]
     Dosage: UNK,UNK
     Dates: start: 20091112
  3. CARBOPLATIN [Concomitant]
     Dosage: UNK,UNK
     Dates: start: 20090723
  4. PACLITAXEL [Concomitant]
     Dosage: UNK,UNK
     Dates: start: 20090723

REACTIONS (3)
  - COLD SWEAT [None]
  - FALL [None]
  - LOSS OF CONSCIOUSNESS [None]
